FAERS Safety Report 7810727-7 (Version None)
Quarter: 2011Q4

REPORT INFORMATION
  Report Type: 
  Country: None (occurrence: None)
  Receive Date: 20111013
  Receipt Date: 20110930
  Transmission Date: 20120403
  Serious: Yes (Other)
  Sender: FDA-Public Use
  Company Number: TR-PAR PHARMACEUTICAL, INC-2011SCPR003271

PATIENT

DRUGS (1)
  1. RISPERIDONE [Suspect]
     Indication: MENTAL DISORDER
     Dosage: 0.25 MG/DAY
     Route: 065

REACTIONS (6)
  - BILIRUBIN CONJUGATED INCREASED [None]
  - GAMMA-GLUTAMYLTRANSFERASE INCREASED [None]
  - BLOOD ALKALINE PHOSPHATASE INCREASED [None]
  - BLOOD BILIRUBIN UNCONJUGATED INCREASED [None]
  - ASPARTATE AMINOTRANSFERASE INCREASED [None]
  - ALANINE AMINOTRANSFERASE INCREASED [None]
